FAERS Safety Report 7700246-0 (Version None)
Quarter: 2011Q3

REPORT INFORMATION
  Report Type: 
  Country: None (occurrence: None)
  Receive Date: 20110822
  Receipt Date: 20110812
  Transmission Date: 20111222
  Serious: Yes (Other)
  Sender: FDA-Public Use
  Company Number: CA-JNJFOC-20110806288

PATIENT
  Age: 21 Year
  Sex: Female

DRUGS (4)
  1. LORAZEPAM [Concomitant]
     Indication: ANXIETY
     Route: 065
  2. ORTHO EVRA [Suspect]
     Indication: PRODUCT USED FOR UNKNOWN INDICATION
     Route: 062
  3. AMOXICILLIN [Interacting]
     Indication: EAR INFECTION
     Route: 065
     Dates: start: 20110101
  4. CLOTRIMAZOLE [Interacting]
     Indication: FUNGAL INFECTION
     Route: 065
     Dates: start: 20110101

REACTIONS (3)
  - EAR INFECTION [None]
  - MENSTRUATION DELAYED [None]
  - DRUG INTERACTION [None]
